FAERS Safety Report 5457981-7 (Version None)
Quarter: 2007Q3

REPORT INFORMATION
  Report Type: 
  Country: None (occurrence: None)
  Receive Date: 20070917
  Receipt Date: 20070907
  Transmission Date: 20080115
  Serious: Yes (Other)
  Sender: FDA-Public Use
  Company Number: CHPA2007US09316

PATIENT
  Age: 77 Year
  Sex: Male

DRUGS (8)
  1. MAALOX ANTIACID/ANTIGAS MAX STR MULTI SYMPTOM (NCH)(MAGNESIUM HYDROXID [Suspect]
     Indication: FLATULENCE
     Dosage: 3 TSP, QD, ORAL
     Route: 048
     Dates: start: 20070902
  2. AGGRENOX [Concomitant]
  3. PRILOSEC [Concomitant]
  4. POTASSIUM CHLORIDE [Concomitant]
  5. LASIX [Concomitant]
  6. METOPROLOL TARTRATE [Concomitant]
  7. ZOCOR [Concomitant]
  8. MULTIVITAMINS (ASCORBIC ACID, ERGOCALCIFEROL, FOLIC ACID, NICOTINAMIDE [Concomitant]

REACTIONS (1)
  - FAECES DISCOLOURED [None]
